FAERS Safety Report 4912859-X (Version None)
Quarter: 2006Q1

REPORT INFORMATION
  Report Type: 
  Country: None (occurrence: None)
  Receive Date: 20060215
  Receipt Date: 20060206
  Transmission Date: 20060701
  Serious: Yes (Other)
  Sender: FDA-Public Use
  Company Number: US-JNJFOC-20060201544

PATIENT
  Sex: Male

DRUGS (2)
  1. REMICADE [Suspect]
     Indication: ANKYLOSING SPONDYLITIS
     Dosage: PATIENT HAS RECEIVED A TOTAL OF 2 INFUSIONS.  5-6 VIALS IV
     Route: 042
  2. MS CONTIN [Concomitant]

REACTIONS (8)
  - ASTHENIA [None]
  - BACK PAIN [None]
  - INTERVERTEBRAL DISC PROTRUSION [None]
  - NECK PAIN [None]
  - PAIN IN EXTREMITY [None]
  - RETCHING [None]
  - SHOULDER PAIN [None]
  - VOMITING [None]
